FAERS Safety Report 9061503 (Version 1)
Quarter: 2013Q1

REPORT INFORMATION
  Report Type: Spontaneous
  Country: US (occurrence: None)
  Receive Date: 20130211
  Receipt Date: 20130211
  Transmission Date: 20140127
  Serious: Yes (Hospitalization)
  Sender: FDA-Public Use
  Company Number: None

PATIENT
  Sex: Male
  Weight: 86 kg

DRUGS (1)
  1. METHOTREXATE [Suspect]

REACTIONS (12)
  - Lethargy [None]
  - Visual impairment [None]
  - Body temperature increased [None]
  - Mucosal inflammation [None]
  - Painful defaecation [None]
  - Nausea [None]
  - Vomiting [None]
  - Arthralgia [None]
  - Rectal haemorrhage [None]
  - Rectal fissure [None]
  - Febrile neutropenia [None]
  - Gastrointestinal disorder [None]
